FAERS Safety Report 6135368-1 (Version None)
Quarter: 2009Q1

REPORT INFORMATION
  Report Type: 
  Country: None (occurrence: None)
  Receive Date: 20090327
  Receipt Date: 20090316
  Transmission Date: 20090719
  Serious: Yes (Death)
  Sender: FDA-Public Use
  Company Number: US-PFIZER INC-2009177648

PATIENT
  Sex: Male
  Weight: 83 kg

DRUGS (4)
  1. SUTENT [Suspect]
     Indication: BLADDER TRANSITIONAL CELL CARCINOMA
     Dosage: 50 MG, 1X/DAY
     Route: 048
     Dates: start: 20090130, end: 20090226
  2. LISINOPRIL AND HYDROCHLOROTHIAZIDE [Concomitant]
     Dosage: 20MG/25MG, ONE TABLET IN THE MORNING
  3. LISINOPRIL [Concomitant]
     Dosage: 20 MG, 1X/DAY, ONE TABLET IN THE EVENING
  4. NORVASC [Concomitant]
     Dosage: 5 MG, 1X/DAY

REACTIONS (1)
  - CORONARY ARTERY DISEASE [None]
